FAERS Safety Report 19989734 (Version 2)
Quarter: 2021Q4

REPORT INFORMATION
  Report Type: Report from Study
  Country: US (occurrence: US)
  Receive Date: 20211025
  Receipt Date: 20211125
  Transmission Date: 20220303
  Serious: Yes (Hospitalization)
  Sender: FDA-Public Use
  Company Number: US-ACADIA PHARMACEUTICALS INC.-ACA-2021-PIM-003708

PATIENT
  Sex: Male

DRUGS (2)
  1. NUPLAZID [Suspect]
     Active Substance: PIMAVANSERIN TARTRATE
     Indication: Parkinson^s disease
     Dosage: 34 MILLIGRAM, QD
     Route: 048
     Dates: start: 20210825
  2. VALIUM [Concomitant]
     Active Substance: DIAZEPAM
     Dosage: 2 MILLIGRAM, BID
     Dates: start: 20210825, end: 202110

REACTIONS (5)
  - Aggression [Unknown]
  - Agitation [Unknown]
  - Bladder dysfunction [Unknown]
  - Functional gastrointestinal disorder [Unknown]
  - Feeling abnormal [Unknown]
